FAERS Safety Report 4538196-3 (Version None)
Quarter: 2004Q4

REPORT INFORMATION
  Report Type: 
  Country: None (occurrence: None)
  Receive Date: 20041221
  Receipt Date: 20041208
  Transmission Date: 20050328
  Serious: Yes (Hospitalization, Other)
  Sender: FDA-Public Use
  Company Number: 2004106601

PATIENT
  Age: 75 Year
  Sex: Female

DRUGS (2)
  1. HYDROCORTISONE [Suspect]
     Indication: ADRENOCORTICAL INSUFFICIENCY CHRONIC
     Dosage: 40 MG, ORAL
     Route: 048
     Dates: start: 19980101
  2. DRUG USED IN DIABETES (DRUG USED IN DIABETES) [Concomitant]

REACTIONS (8)
  - ARTERIOSCLEROSIS [None]
  - ASCITES [None]
  - CHOLELITHIASIS [None]
  - GALLBLADDER PERFORATION [None]
  - ISCHAEMIA [None]
  - PANCREATIC DUCT OBSTRUCTION [None]
  - PANCREATITIS [None]
  - PERITONITIS [None]
